FAERS Safety Report 21284516 (Version 2)
Quarter: 2022Q4

REPORT INFORMATION
  Report Type: Report from Study
  Country: BR (occurrence: BR)
  Receive Date: 20220902
  Receipt Date: 20221012
  Transmission Date: 20230112
  Serious: Yes (Other)
  Sender: FDA-Public Use
  Company Number: BR-JNJFOC-20220856471

PATIENT
  Sex: Female
  Weight: 65 kg

DRUGS (2)
  1. INFLIXIMAB [Suspect]
     Active Substance: INFLIXIMAB
     Indication: Crohn^s disease
     Route: 041
     Dates: start: 20080525
  2. INFLIXIMAB [Suspect]
     Active Substance: INFLIXIMAB
     Route: 041
     Dates: start: 2009

REACTIONS (4)
  - Fistula [Unknown]
  - Crohn^s disease [Recovering/Resolving]
  - Herpes virus infection [Not Recovered/Not Resolved]
  - Off label use [Unknown]
